FAERS Safety Report 6914269-2 (Version None)
Quarter: 2010Q3

REPORT INFORMATION
  Report Type: 
  Country: None (occurrence: None)
  Receive Date: 20100809
  Receipt Date: 20100730
  Transmission Date: 20110219
  Serious: Yes (Hospitalization)
  Sender: FDA-Public Use
  Company Number: B0604882A

PATIENT
  Sex: Female
  Weight: 41 kg

DRUGS (4)
  1. TYKERB [Suspect]
     Indication: BREAST CANCER
     Dosage: 1250MG PER DAY
     Route: 048
     Dates: start: 20090626, end: 20100318
  2. XELODA [Suspect]
     Indication: BREAST CANCER
     Dosage: 3000MG PER DAY
     Route: 048
     Dates: start: 20090626, end: 20100318
  3. RINDERON [Suspect]
     Indication: METASTASES TO CENTRAL NERVOUS SYSTEM
  4. GASTER [Concomitant]
     Route: 065

REACTIONS (4)
  - ERYTHEMA [None]
  - HEPATIC FUNCTION ABNORMAL [None]
  - PARONYCHIA [None]
  - PULMONARY EMBOLISM [None]
